FAERS Safety Report 17301987 (Version 1)
Quarter: 2020Q1

REPORT INFORMATION
  Report Type: Spontaneous
  Country: US (occurrence: US)
  Receive Date: 20200122
  Receipt Date: 20200122
  Transmission Date: 20200409
  Serious: Yes (Other)
  Sender: FDA-Public Use
  Company Number: US-ABBVIE-19K-163-3203121-00

PATIENT
  Sex: Female

DRUGS (1)
  1. ORILISSA [Suspect]
     Active Substance: ELAGOLIX SODIUM
     Indication: ENDOMETRIOSIS
     Route: 048
     Dates: start: 201906

REACTIONS (14)
  - Suicidal ideation [Unknown]
  - Amnesia [Unknown]
  - Myalgia [Unknown]
  - Arthralgia [Unknown]
  - Headache [Unknown]
  - Mood altered [Unknown]
  - Fatigue [Unknown]
  - Depression [Unknown]
  - Loss of libido [Unknown]
  - Insomnia [Unknown]
  - Dyspepsia [Unknown]
  - Pain [Unknown]
  - Hot flush [Unknown]
  - Back pain [Unknown]

NARRATIVE: CASE EVENT DATE: 2019
